FAERS Safety Report 9099240 (Version 1)
Quarter: 2013Q1

REPORT INFORMATION
  Report Type: Spontaneous
  Country: US (occurrence: US)
  Receive Date: 20130214
  Receipt Date: 20130214
  Transmission Date: 20140127
  Serious: Yes (Death)
  Sender: FDA-Public Use
  Company Number: US-BANPHARM-20130730

PATIENT
  Age: 57 Year
  Sex: Female

DRUGS (11)
  1. IBUPROFEN UNKNOWN PRODUCT [Suspect]
     Route: 048
  2. ATENOLOL [Suspect]
  3. ACETAMINOPHEN\HYDROCODONE [Suspect]
  4. CITALOPRAM [Suspect]
  5. OXYCODONE [Suspect]
  6. HYDROMORPHONE [Suspect]
  7. CLONAZEPAM [Suspect]
  8. BROMPHENIRAMINE [Suspect]
  9. GABAPENTIN [Suspect]
  10. ACETAMINOPHEN [Suspect]
  11. CELECOXIB [Suspect]

REACTIONS (2)
  - Completed suicide [Fatal]
  - Cardio-respiratory arrest [Fatal]
